FAERS Safety Report 5455172-7 (Version None)
Quarter: 2007Q3

REPORT INFORMATION
  Report Type: 
  Country: None (occurrence: None)
  Receive Date: 20070914
  Receipt Date: 20070910
  Transmission Date: 20080115
  Serious: Yes (Other)
  Sender: FDA-Public Use
  Company Number: SP01570

PATIENT
  Age: 48 Year
  Sex: Female

DRUGS (7)
  1. MOVIPREP [Suspect]
     Indication: BOWEL PREPARATION
     Dosage: (2 LIT), ORAL
     Route: 048
     Dates: start: 20070807, end: 20070808
  2. SYMBICORT (INHALANT) [Concomitant]
  3. TRAMADOL HCL [Concomitant]
  4. BUSCOPAN [Concomitant]
  5. MIDAZOLAM HCL [Concomitant]
  6. RAMIPRIL [Concomitant]
  7. SALBUTAMOL [Concomitant]

REACTIONS (13)
  - BLOOD PRESSURE INCREASED [None]
  - DIZZINESS [None]
  - HYPERVENTILATION [None]
  - MUSCLE SPASMS [None]
  - MUSCLE TWITCHING [None]
  - NAUSEA [None]
  - NERVOUSNESS [None]
  - PALLOR [None]
  - PARAESTHESIA [None]
  - SLEEP DISORDER [None]
  - TREMOR [None]
  - VISUAL ACUITY REDUCED [None]
  - VOMITING [None]
